FAERS Safety Report 24376795 (Version 1)
Quarter: 2024Q3

REPORT INFORMATION
  Report Type: Spontaneous
  Country: US (occurrence: US)
  Receive Date: 20240930
  Receipt Date: 20240930
  Transmission Date: 20241017
  Serious: No
  Sender: NOVARTIS
  Company Number: US-002147023-NVSC2024US192583

PATIENT
  Age: 45 Year
  Sex: Female

DRUGS (1)
  1. LEQVIO [Suspect]
     Active Substance: INCLISIRAN SODIUM
     Indication: Hyperlipidaemia
     Dosage: 284 MG (284/1.5 MG/ML) (EVERY 6 MONTHS) (LIQUID)
     Route: 058
     Dates: start: 20240915

REACTIONS (1)
  - Myalgia [Unknown]
